FAERS Safety Report 5285196-4 (Version None)
Quarter: 2007Q1

REPORT INFORMATION
  Report Type: 
  Country: None (occurrence: None)
  Receive Date: 20061229
  Receipt Date: 20060825
  Transmission Date: 20070707
  Serious: Yes (Other)
  Sender: FDA-Public Use
  Company Number: 2006UW16967

PATIENT
  Sex: Female

DRUGS (1)
  1. CRESTOR [Suspect]
     Dates: start: 20040202, end: 20040620

REACTIONS (2)
  - HYPERKALAEMIA [None]
  - STEVENS-JOHNSON SYNDROME [None]
